FAERS Safety Report 7955572-7 (Version None)
Quarter: 2011Q4

REPORT INFORMATION
  Report Type: 
  Country: None (occurrence: None)
  Receive Date: 20111202
  Receipt Date: 20111123
  Transmission Date: 20120403
  Serious: Yes (Disabling)
  Sender: FDA-Public Use
  Company Number: GB-ASTRAZENECA-2011SE61439

PATIENT
  Age: 62 Year
  Sex: Female

DRUGS (8)
  1. SEROQUEL [Suspect]
     Indication: TOURETTE'S DISORDER
     Route: 048
     Dates: start: 20110901, end: 20111001
  2. SEROQUEL [Suspect]
     Indication: AFFECTIVE DISORDER
     Route: 048
     Dates: start: 20110901, end: 20111001
  3. TOPIRAMATE [Concomitant]
     Indication: EPILEPSY
     Route: 048
  4. PREGABALIN [Concomitant]
     Route: 048
  5. CITALOPRAM HYDROBROMIDE [Concomitant]
     Route: 048
  6. SEROQUEL [Suspect]
     Indication: BIPOLAR DISORDER
     Route: 048
     Dates: start: 20110901, end: 20111001
  7. TOPIRAMATE [Concomitant]
     Route: 048
  8. ARIPIPRAZOLE [Concomitant]
     Route: 048
     Dates: start: 20111004

REACTIONS (3)
  - RASH PRURITIC [None]
  - OEDEMA [None]
  - PURPURA [None]
